FAERS Safety Report 8897662 (Version 1)
Quarter: 2012Q4

REPORT INFORMATION
  Report Type: 
  Country: US (occurrence: US)
  Receive Date: 20121108
  Receipt Date: 20121108
  Transmission Date: 20130627
  Serious: No
  Sender: FDA-Public Use
  Company Number: US-AMGEN-USASP2012038736

PATIENT
  Age: 63 Year
  Sex: Female

DRUGS (11)
  1. ENBREL [Suspect]
     Indication: PRODUCT USED FOR UNKNOWN INDICATION
     Dosage: 50 mg/ml
     Route: 058
  2. CELEBREX [Concomitant]
     Dosage: UNK
  3. METHOTREXATE [Concomitant]
     Dosage: UNK
  4. PROCARDIA                          /00340701/ [Concomitant]
     Dosage: 10 mg, UNK
  5. ATENOLOL [Concomitant]
     Dosage: 25 mg, UNK
  6. FOLIC ACID [Concomitant]
     Dosage: 1 mg, UNK
  7. ZANTAC [Concomitant]
     Dosage: 150 mg, UNK
  8. FISH OIL [Concomitant]
     Dosage: UNK
  9. CALCIUM [Concomitant]
     Dosage: 500 UNK, UNK
  10. ASPIRIN LOW [Concomitant]
     Dosage: 81 mg, UNK
  11. MULTIVITAMIN                       /00097801/ [Concomitant]
     Dosage: UNK

REACTIONS (1)
  - Injection site bruising [Unknown]
